FAERS Safety Report 8742653 (Version 3)
Quarter: 2013Q1

REPORT INFORMATION
  Report Type: Spontaneous
  Country: US (occurrence: US)
  Receive Date: 20121019
  Receipt Date: 20130312
  Transmission Date: 20140127
  Serious: Yes (Hospitalization, Other)
  Sender: FDA-Public Use
  Company Number: US-009507513-2012SP032520

PATIENT
  Sex: Male

DRUGS (3)
  1. PEGINTRON [Suspect]
     Indication: HEPATITIS C
     Dosage: 80 MICROGRAM, QW
     Route: 058
     Dates: start: 20120427, end: 20130110
  2. RIBAVIRIN [Suspect]
     Indication: HEPATITIS C
     Dosage: UNK
     Dates: start: 20120427, end: 20130110
  3. PROGRAF [Concomitant]
     Indication: LIVER TRANSPLANT

REACTIONS (20)
  - Full blood count decreased [Unknown]
  - Pain [Unknown]
  - Anaemia [Unknown]
  - Tinnitus [Unknown]
  - Hot flush [Unknown]
  - Confusional state [Unknown]
  - Pain in extremity [Unknown]
  - Depression [Unknown]
  - Fatigue [Unknown]
  - White blood cell count decreased [Unknown]
  - Abdominal pain [Unknown]
  - Chills [Unknown]
  - Diarrhoea [Unknown]
  - Decreased appetite [Unknown]
  - Transfusion [Unknown]
  - Refractory cytopenia with unilineage dysplasia [Unknown]
  - Blood phosphorus increased [Unknown]
  - Platelet count decreased [Unknown]
  - Fatigue [Unknown]
  - Influenza [Unknown]
